FAERS Safety Report 6913073-9 (Version None)
Quarter: 2010Q3

REPORT INFORMATION
  Report Type: 
  Country: None (occurrence: None)
  Receive Date: 20100806
  Receipt Date: 20090630
  Transmission Date: 20110219
  Serious: No
  Sender: FDA-Public Use
  Company Number: US-PFIZER INC-2009234488

PATIENT
  Sex: Female

DRUGS (1)
  1. NORPACE [Suspect]
     Dosage: 300 MG IN AM; 150 MG IN PM

REACTIONS (2)
  - ANXIETY [None]
  - BLOOD PRESSURE INADEQUATELY CONTROLLED [None]
